FAERS Safety Report 22653547 (Version 1)
Quarter: 2023Q2

REPORT INFORMATION
  Report Type: Spontaneous
  Country: US (occurrence: US)
  Receive Date: 20230629
  Receipt Date: 20230629
  Transmission Date: 20230721
  Serious: Yes (Hospitalization)
  Sender: FDA-Public Use
  Company Number: US-TAKEDA-2023TUS061965

PATIENT
  Sex: Female

DRUGS (1)
  1. ADDERALL XR [Suspect]
     Active Substance: AMPHETAMINE ASPARTATE\AMPHETAMINE SULFATE\DEXTROAMPHETAMINE SACCHARATE\DEXTROAMPHETAMINE SULFATE
     Indication: Product used for unknown indication
     Dosage: UNK
     Route: 065

REACTIONS (12)
  - Paranoia [Unknown]
  - Feeling of body temperature change [Unknown]
  - Dysstasia [Unknown]
  - Tremor [Unknown]
  - Dizziness [Unknown]
  - Heart rate increased [Unknown]
  - Headache [Unknown]
  - Confusional state [Unknown]
  - Nausea [Unknown]
  - Hyperhidrosis [Unknown]
  - Chest pain [Unknown]
  - Anxiety [Unknown]
